FAERS Safety Report 7414478-2 (Version None)
Quarter: 2011Q1

REPORT INFORMATION
  Report Type: 
  Country: None (occurrence: None)
  Receive Date: 20110328
  Receipt Date: 20110328
  Transmission Date: 20110831
  Serious: Yes (Hospitalization)
  Sender: FDA-Public Use
  Company Number: None

PATIENT
  Age: 64 Year
  Sex: Female
  Weight: 60.1 kg

DRUGS (3)
  1. BEVACIZUMAB 25MG/ML GENENTECH [Suspect]
     Indication: LUNG NEOPLASM MALIGNANT
     Dosage: 923 MG IV EVERY 21 DAYS
     Route: 042
     Dates: start: 20110225
  2. DOCETAXEL [Suspect]
     Indication: LUNG NEOPLASM MALIGNANT
     Dosage: 124MG IV EVERY 21 DAYS
     Route: 042
     Dates: start: 20110225
  3. GEMCITABINE [Suspect]
     Indication: LUNG NEOPLASM MALIGNANT
     Dosage: 1485MG IV D1, D8 Q 21 DAYS
     Route: 042
     Dates: start: 20110225

REACTIONS (1)
  - FEBRILE NEUTROPENIA [None]
